FAERS Safety Report 18594945 (Version 3)
Quarter: 2021Q1

REPORT INFORMATION
  Report Type: Other
  Country: SG (occurrence: SG)
  Receive Date: 20201209
  Receipt Date: 20210311
  Transmission Date: 20210419
  Serious: Yes (Death, Other)
  Sender: FDA-Public Use
  Company Number: SG-ROCHE-2721594

PATIENT
  Age: 73 Year
  Sex: Female

DRUGS (1)
  1. KADCYLA [Suspect]
     Active Substance: ADO-TRASTUZUMAB EMTANSINE
     Indication: BREAST CANCER METASTATIC
     Route: 065
     Dates: start: 202001, end: 202001

REACTIONS (3)
  - Pulmonary oedema [Unknown]
  - Breast cancer [Fatal]
  - Pneumonia [Unknown]

NARRATIVE: CASE EVENT DATE: 202006
